FAERS Safety Report 17410001 (Version 2)
Quarter: 2020Q1

REPORT INFORMATION
  Report Type: Spontaneous
  Country: CA (occurrence: CA)
  Receive Date: 20200212
  Receipt Date: 20200227
  Transmission Date: 20200409
  Serious: Yes (Other)
  Sender: FDA-Public Use
  Company Number: CA-PFIZER INC-2019558638

PATIENT
  Age: 61 Year
  Sex: Female
  Weight: 118 kg

DRUGS (3)
  1. SUTENT [Suspect]
     Active Substance: SUNITINIB MALATE
     Dosage: 25 MG, CYCLIC (FOR 2 WEEKS ON AND 7 DAYS OFF)
     Route: 048
     Dates: start: 20190109
  2. SUTENT [Suspect]
     Active Substance: SUNITINIB MALATE
     Dosage: 25 MG, CYCLIC  (14/21 DAY)
     Route: 048
     Dates: start: 20190705, end: 20191227
  3. SUTENT [Suspect]
     Active Substance: SUNITINIB MALATE
     Indication: RENAL CANCER
     Dosage: 50 MG, UNK
     Route: 048

REACTIONS (4)
  - Visual impairment [Recovered/Resolved]
  - Swelling face [Unknown]
  - Periorbital swelling [Unknown]
  - Transient ischaemic attack [Unknown]
